FAERS Safety Report 10309352 (Version 2)
Quarter: 2014Q3

REPORT INFORMATION
  Report Type: Spontaneous
  Country: US (occurrence: None)
  Receive Date: 20140714
  Receipt Date: 20140924
  Transmission Date: 20150326
  Serious: Yes (Other)
  Sender: FDA-Public Use
  Company Number: 2014-19929

PATIENT
  Age: 78 Year
  Sex: Male

DRUGS (3)
  1. EYLEA [Suspect]
     Active Substance: AFLIBERCEPT
     Indication: AGE-RELATED MACULAR DEGENERATION
     Dosage: MONTHLY, INTRAOCULAR.
     Dates: start: 20140523
  2. LIPITOR [Concomitant]
     Active Substance: ATORVASTATIN CALCIUM
  3. PLAVIX [Concomitant]
     Active Substance: CLOPIDOGREL BISULFATE

REACTIONS (2)
  - Haemorrhage [None]
  - Drug ineffective [None]
